FAERS Safety Report 6339630-9 (Version None)
Quarter: 2009Q3

REPORT INFORMATION
  Report Type: 
  Country: None (occurrence: None)
  Receive Date: 20090903
  Receipt Date: 20090826
  Transmission Date: 20100115
  Serious: Yes (Death)
  Sender: FDA-Public Use
  Company Number: JP-BRISTOL-MYERS SQUIBB COMPANY-14764153

PATIENT
  Age: 49 Year
  Sex: Male

DRUGS (10)
  1. ABILIFY [Suspect]
     Indication: SCHIZOPHRENIA
     Route: 048
  2. ANAFRANIL [Suspect]
     Dosage: TAKEN AS TABS
     Route: 048
  3. HALOPERIDOL [Concomitant]
     Dosage: TAKEN AS TABS
  4. PEROSPIRONE [Concomitant]
     Dosage: HCL,FORMULATION:TABS
  5. LORAZEPAM [Concomitant]
     Dosage: FORMULATION:TABS
  6. TRIHEXYPHENIDYL HCL [Concomitant]
  7. TRIAZOLAM [Concomitant]
  8. FLUNITRAZEPAM [Concomitant]
  9. LEVOMEPROMAZINE MALEATE [Concomitant]
  10. SENNOSIDE A [Concomitant]
     Dosage: FORMULATION:TABS

REACTIONS (1)
  - SUDDEN DEATH [None]
